FAERS Safety Report 24699662 (Version 2)
Quarter: 2024Q4

REPORT INFORMATION
  Report Type: Report from Study
  Country: US (occurrence: US)
  Receive Date: 20241205
  Receipt Date: 20241209
  Transmission Date: 20250114
  Serious: Yes (Death)
  Sender: ROCHE
  Company Number: US-ROCHE-10000149810

PATIENT
  Age: 57 Year
  Sex: Female

DRUGS (2)
  1. AVASTIN [Suspect]
     Active Substance: BEVACIZUMAB
     Indication: Ovarian germ cell cancer
     Dosage: INFUSE 15MG/KG (1000MG) INTRAVENOUSLY EVERY 21 DAY(S) (2X400 MG AND 2X100 MG VIALS). DATES OF TREATM
     Route: 042
  2. AVASTIN [Suspect]
     Active Substance: BEVACIZUMAB
     Dosage: INFUSE 15MG/KG (1000MG) INTRAVENOUSLY?(2X400 MG AND 2X100 MG VIALS)
     Route: 042

REACTIONS (1)
  - Death [Fatal]
